FAERS Safety Report 15284108 (Version 1)
Quarter: 2018Q3

REPORT INFORMATION
  Report Type: Spontaneous
  Country: US (occurrence: US)
  Receive Date: 20180801
  Receipt Date: 20180801
  Transmission Date: 20181010
  Serious: Yes (Other)
  Sender: FDA-Public Use
  Company Number: None

PATIENT
  Age: 52 Year
  Sex: Male

DRUGS (1)
  1. BUPRENORPHINE?NALOXONE [Suspect]
     Active Substance: BUPRENORPHINE HYDROCHLORIDE\NALOXONE HYDROCHLORIDE
     Indication: DRUG DEPENDENCE
     Route: 048
     Dates: start: 20180625, end: 20180801

REACTIONS (5)
  - Drug dependence [None]
  - Drug level decreased [None]
  - Unevaluable event [None]
  - Drug hypersensitivity [None]
  - Peripheral swelling [None]

NARRATIVE: CASE EVENT DATE: 20180625
